FAERS Safety Report 5223203-5 (Version None)
Quarter: 2007Q1

REPORT INFORMATION
  Report Type: 
  Country: None (occurrence: None)
  Receive Date: 20070124
  Receipt Date: 20070108
  Transmission Date: 20070707
  Serious: Yes (Hospitalization)
  Sender: FDA-Public Use
  Company Number: ES-2007-000375

PATIENT
  Age: 76 Year
  Sex: Female

DRUGS (1)
  1. LEPIRUDIN (LEPIRUDIN) LYOPHILIZED DRY SUBSTANCE [Suspect]
     Indication: HEPARIN-INDUCED THROMBOCYTOPENIA
     Dosage: 0.05 MG/KG, EVERY 2D, IV BOLUS
     Route: 040

REACTIONS (5)
  - CHEST PAIN [None]
  - HAEMODIALYSIS [None]
  - HYPOTENSION [None]
  - OVERDOSE [None]
  - THROMBOSIS [None]
